FAERS Safety Report 6039210-9 (Version None)
Quarter: 2009Q1

REPORT INFORMATION
  Report Type: 
  Country: None (occurrence: None)
  Receive Date: 20090115
  Receipt Date: 20090108
  Transmission Date: 20090719
  Serious: No
  Sender: FDA-Public Use
  Company Number: US-B.I. PHARMACEUTICALS,INC./RIDGEFIELD-2009-BP-00355BP

PATIENT
  Sex: Male

DRUGS (1)
  1. ZANTAC 150 [Suspect]
     Indication: ABDOMINAL PAIN UPPER
     Dosage: 150MG
     Route: 048
     Dates: start: 20081201

REACTIONS (1)
  - DRUG INEFFECTIVE [None]
